FAERS Safety Report 12803959 (Version 1)
Quarter: 2016Q4

REPORT INFORMATION
  Report Type: Spontaneous
  Country: FI (occurrence: FI)
  Receive Date: 20161003
  Receipt Date: 20161003
  Transmission Date: 20170207
  Serious: Yes (Life-Threatening, Hospitalization, Other)
  Sender: FDA-Public Use
  Company Number: FI-PFIZER INC-2016459805

PATIENT
  Age: 76 Year
  Sex: Female

DRUGS (15)
  1. EMCONCOR [Concomitant]
     Active Substance: BISOPROLOL FUMARATE
     Dosage: 1+2 PER DAY
     Route: 065
  2. PRIMPERAN [Concomitant]
     Active Substance: METOCLOPRAMIDE HYDROCHLORIDE
     Dosage: 1 DOSE 1-3 TIMES PER DAY PER NEED
     Route: 065
  3. SIMVASTATIN. [Concomitant]
     Active Substance: SIMVASTATIN
     Dosage: UNK
     Route: 065
     Dates: end: 2016
  4. SYMBICORT [Concomitant]
     Active Substance: BUDESONIDE\FORMOTEROL FUMARATE DIHYDRATE
     Dosage: 2 DOSES, 2X/DAY
     Route: 065
  5. OMEPRAZOLE. [Concomitant]
     Active Substance: OMEPRAZOLE
     Dosage: 40 MG, 1X/DAY
     Route: 065
  6. MAREVAN [Concomitant]
     Active Substance: WARFARIN SODIUM
     Dosage: DOSING AS PER SEPARATE INSTRUCTIONS
     Route: 065
  7. FURESIS [Concomitant]
     Active Substance: FUROSEMIDE
     Dosage: 40 MG, 2X/DAY
     Route: 065
  8. LEVOLAC [Concomitant]
     Active Substance: LACTULOSE
     Dosage: 10-20ML, 2-3 TIMES PER DAY
     Route: 065
  9. DIFORMIN [Concomitant]
     Active Substance: METFORMIN HYDROCHLORIDE
     Dosage: UNK
     Route: 065
     Dates: end: 2016
  10. TREXAN [Suspect]
     Active Substance: METHOTREXATE SODIUM
     Indication: RHEUMATOID ARTHRITIS
     Dosage: 2.1429 MG (15 MG, WEEKLY)
     Route: 048
     Dates: start: 2000, end: 201608
  11. CALCICHEW-D3 FORTE [Concomitant]
     Active Substance: CALCIUM\CHOLECALCIFEROL
     Dosage: UNK, 1X/DAY
     Route: 065
  12. FOLVITE /00024201/ [Concomitant]
     Dosage: 1 MG, 1X/DAY
     Route: 065
  13. SINGULAIR [Concomitant]
     Active Substance: MONTELUKAST SODIUM
     Dosage: 10 MG, 1X/DAY
     Route: 065
  14. IMOVANE [Concomitant]
     Active Substance: ZOPICLONE
     Dosage: 7.5 MG, 1X/DAY (PER NEED)
     Route: 065
  15. VENTOLINE /00139501/ [Concomitant]
     Active Substance: ALBUTEROL
     Dosage: 1 DOSE 1-4 TIMES PER DAY PER NEED
     Route: 041

REACTIONS (4)
  - Pancytopenia [Unknown]
  - Hepatic cirrhosis [Recovered/Resolved with Sequelae]
  - Folate deficiency [Unknown]
  - Medication error [Unknown]

NARRATIVE: CASE EVENT DATE: 2016
